FAERS Safety Report 5732653-X (Version None)
Quarter: 2008Q2

REPORT INFORMATION
  Report Type: 
  Country: None (occurrence: None)
  Receive Date: 20080507
  Receipt Date: 20080429
  Transmission Date: 20081010
  Serious: Yes (Other)
  Sender: FDA-Public Use
  Company Number: JPI-P-003431

PATIENT
  Age: 38 Year
  Sex: Female

DRUGS (21)
  1. XYREM [Suspect]
     Indication: NARCOLEPSY
     Dosage: 9 GM (4.5 GM, 2 IN 1 D), ORAL; 6 GM (3 GM, 2 IN 1 D), ORAL; 9 GM (4.5 GM, 2 IN 1 D), ORAL
     Route: 048
     Dates: start: 20080101, end: 20080301
  2. MORPHINE [Concomitant]
  3. TOPIRAMATE [Concomitant]
  4. VENLAFAXINE HCL [Concomitant]
  5. LUBIPROSTONE         (ALL OTHER THERAPEUTIC PRODUCTS) [Concomitant]
  6. HORMONE REPLACEMENT THERAPY (HORMONES NOS) [Concomitant]
  7. IBANDRONATE SODIUM            (IBANDRONATE SODIUM) [Concomitant]
  8. CALCIUM (CALCIUM) [Concomitant]
  9. MAGNESIUM (MAGNESIUM) [Concomitant]
  10. VITAMIN D [Concomitant]
  11. AMOXICILLIN [Concomitant]
  12. MODAFINIL [Concomitant]
  13. DICLOFENAC SODIUM [Concomitant]
  14. METHADONE HCL [Concomitant]
  15. HYDROXYCHLOROQUINE SULFATE [Concomitant]
  16. ESOMEPRAZOLE MAGNESIUM (ESOMEPRAZOLE MAGNESIUM) [Concomitant]
  17. PREGABALIN   (PREGABALIN) [Concomitant]
  18. LIPASE, PROTEASE AND AMYLASE (PANCREATIN) [Concomitant]
  19. SUMATRIPTAN SUCCINATE [Concomitant]
  20. PHENERGAN [Concomitant]
  21. LEVOTHYROXINE SODIUM [Concomitant]

REACTIONS (3)
  - CONDITION AGGRAVATED [None]
  - PYREXIA [None]
  - SYSTEMIC LUPUS ERYTHEMATOSUS [None]
